FAERS Safety Report 10102152 (Version 1)
Quarter: 2014Q2

REPORT INFORMATION
  Report Type: Spontaneous
  Country: US (occurrence: None)
  Receive Date: 20140423
  Receipt Date: 20140423
  Transmission Date: 20141212
  Serious: Yes (Hospitalization)
  Sender: FDA-Public Use
  Company Number: None

PATIENT
  Age: 69 Year
  Sex: Female
  Weight: 62.2 kg

DRUGS (2)
  1. CISPLATIN [Suspect]
     Dates: start: 20110427
  2. ETOPOSIDE (VP-16) [Suspect]
     Dates: start: 20110429

REACTIONS (2)
  - Neutrophil count abnormal [None]
  - White blood cell disorder [None]
